FAERS Safety Report 9294540 (Version 1)
Quarter: 2013Q2

REPORT INFORMATION
  Report Type: Spontaneous
  Country: GB (occurrence: GB)
  Receive Date: 20130517
  Receipt Date: 20130517
  Transmission Date: 20140414
  Serious: Yes (Hospitalization, Other)
  Sender: FDA-Public Use
  Company Number: GB-RANBAXY-2013R1-68967

PATIENT
  Age: 13 Year
  Sex: Male
  Weight: 49 kg

DRUGS (2)
  1. AMOXICILLIN [Suspect]
     Indication: LOWER RESPIRATORY TRACT INFECTION
     Dosage: UNK
     Route: 048
     Dates: start: 20130401, end: 20130404
  2. VITAMINS NOS [Concomitant]
     Indication: PRODUCT USED FOR UNKNOWN INDICATION
     Route: 065

REACTIONS (7)
  - Oral mucosal blistering [Unknown]
  - Eye pain [Unknown]
  - Eye irritation [Unknown]
  - Stevens-Johnson syndrome [Recovering/Resolving]
  - Dysphagia [Unknown]
  - Odynophagia [Unknown]
  - Lip swelling [Unknown]
